FAERS Safety Report 13491683 (Version 2)
Quarter: 2017Q2

REPORT INFORMATION
  Report Type: Spontaneous
  Country: US (occurrence: US)
  Receive Date: 20170427
  Receipt Date: 20170525
  Transmission Date: 20170830
  Serious: No
  Sender: FDA-Public Use
  Company Number: US-PFIZER INC-2017182684

PATIENT
  Age: 76 Year
  Sex: Female
  Weight: 85 kg

DRUGS (12)
  1. 5MI NEO/POLY/DEX/SOL [Concomitant]
     Indication: DRY EYE
     Dosage: 0.1% OPSUS, 1 DROP IN EACH EYE EACH MORNING
     Route: 047
     Dates: start: 201505
  2. BENICAR [Concomitant]
     Active Substance: OLMESARTAN MEDOXOMIL
     Indication: HYPERTENSION
     Dosage: 20 MG, DAILY
     Route: 048
     Dates: start: 2015
  3. CELEXA [Concomitant]
     Active Substance: CITALOPRAM HYDROBROMIDE
     Indication: DEPRESSION
     Dosage: 40 MG, DAILY
     Route: 048
  4. LYRICA [Suspect]
     Active Substance: PREGABALIN
     Indication: NEUROPATHY PERIPHERAL
     Dosage: 75 MG, 3X/DAY
     Route: 048
  5. FUROSEMIDE. [Concomitant]
     Active Substance: FUROSEMIDE
     Indication: PERIPHERAL SWELLING
     Dosage: 20 MG, 1X/DAY AS NEEDED
     Route: 048
  6. FUROSEMIDE. [Concomitant]
     Active Substance: FUROSEMIDE
     Indication: PERIPHERAL SWELLING
  7. PROTONIX /00661201/ [Concomitant]
     Active Substance: OMEPRAZOLE
     Indication: HIATUS HERNIA
     Dosage: 40 MG, 2X/DAY
     Route: 048
     Dates: start: 2017
  8. POTASSIUM CHLORIDE. [Concomitant]
     Active Substance: POTASSIUM CHLORIDE
     Indication: SUPPLEMENTATION THERAPY
     Dosage: 10 MEQ, AS NEEDED
  9. PRIMIDONE. [Concomitant]
     Active Substance: PRIMIDONE
     Indication: TREMOR
     Dosage: 50 MG, DAILY
     Route: 048
  10. 4GMNEO/POL/DEX/OINT [Concomitant]
     Indication: DRY EYE
     Dosage: APPLY ONE HALF OF A RIBBON AT BEDTIME INTO THE LEFT EYE
     Dates: start: 201505
  11. LYRICA [Suspect]
     Active Substance: PREGABALIN
     Dosage: 75 MG, 2X/DAY
     Route: 048
  12. HYDROCODONE [Concomitant]
     Active Substance: HYDROCODONE
     Indication: PAIN
     Dosage: 7.5-325 1 DF, 1X/DAY
     Route: 048

REACTIONS (4)
  - Hypertension [Unknown]
  - Hypoaesthesia [Unknown]
  - Drug effect incomplete [Unknown]
  - Drug dose omission [Unknown]
